FAERS Safety Report 8407664-6 (Version None)
Quarter: 2012Q2

REPORT INFORMATION
  Report Type: 
  Country: None (occurrence: None)
  Receive Date: 20120604
  Receipt Date: 20120525
  Transmission Date: 20120825
  Serious: Yes (Hospitalization)
  Sender: FDA-Public Use
  Company Number: US-GLAXOSMITHKLINE-A0977752A

PATIENT
  Age: 63 Year
  Sex: Female
  Weight: 93.6 kg

DRUGS (9)
  1. VENLAFAXINE [Concomitant]
     Indication: DEPRESSION
     Dosage: 75MG PER DAY
     Route: 048
     Dates: start: 20100421
  2. ATENOLOL [Concomitant]
     Indication: HEADACHE
     Dosage: 25MG PER DAY
     Route: 048
     Dates: start: 20060301
  3. LOPERAMIDE [Concomitant]
     Indication: DIARRHOEA
     Dosage: 2MG AS REQUIRED
     Route: 048
  4. MEPRON [Concomitant]
     Indication: INFECTION PROPHYLAXIS
     Dosage: 750MG PER DAY
     Route: 048
     Dates: start: 20101229
  5. ZOMIG [Concomitant]
     Indication: HEADACHE
     Dosage: 5MG AS REQUIRED
     Route: 048
     Dates: start: 20060301
  6. COMPAZINE [Concomitant]
     Indication: NAUSEA
     Dosage: 10MG AS REQUIRED
     Route: 048
     Dates: start: 20101012
  7. LEVAQUIN [Concomitant]
     Indication: SINUSITIS
     Dosage: 300MG AS REQUIRED
     Route: 048
     Dates: start: 20111111
  8. AZITHROMYCIN [Concomitant]
     Indication: SINUSITIS
     Dosage: 250MG AS REQUIRED
     Route: 048
     Dates: start: 20111111, end: 20111123
  9. ARZERRA [Suspect]
     Indication: CHRONIC LYMPHOCYTIC LEUKAEMIA
     Dosage: 2000MG WEEKLY
     Route: 042
     Dates: start: 20111129, end: 20120214

REACTIONS (4)
  - DIARRHOEA [None]
  - MENTAL STATUS CHANGES [None]
  - SOMNOLENCE [None]
  - GAIT DISTURBANCE [None]
